FAERS Safety Report 25653206 (Version 2)
Quarter: 2025Q3

REPORT INFORMATION
  Report Type: Spontaneous
  Country: BR (occurrence: BR)
  Receive Date: 20250807
  Receipt Date: 20250813
  Transmission Date: 20251020
  Serious: Yes (Death)
  Sender: GENMAB
  Company Number: BR-ABBVIE-6366601

PATIENT
  Sex: Female

DRUGS (2)
  1. EPCORITAMAB [Suspect]
     Active Substance: EPCORITAMAB
     Indication: Burkitt^s lymphoma
     Route: 058
     Dates: start: 202506, end: 202506
  2. EPCORITAMAB [Suspect]
     Active Substance: EPCORITAMAB
     Route: 058
     Dates: start: 20250702

REACTIONS (3)
  - Encephalitis cytomegalovirus [Fatal]
  - Immunosuppression [Unknown]
  - Neutropenia [Not Recovered/Not Resolved]

NARRATIVE: CASE EVENT DATE: 20250101
